FAERS Safety Report 18442039 (Version 1)
Quarter: 2020Q4

REPORT INFORMATION
  Report Type: Spontaneous
  Country: US (occurrence: US)
  Receive Date: 20201029
  Receipt Date: 20201029
  Transmission Date: 20210114
  Serious: No
  Sender: FDA-Public Use
  Company Number: US-SA-2020SA299608

PATIENT

DRUGS (1)
  1. LOVENOX [Suspect]
     Active Substance: ENOXAPARIN SODIUM
     Dosage: 40 MG, BID FOR 8 WEEKS
     Route: 065
     Dates: start: 20200827

REACTIONS (2)
  - Exposure during pregnancy [Unknown]
  - Off label use [Unknown]
